FAERS Safety Report 4297850-1 (Version None)
Quarter: 2004Q1

REPORT INFORMATION
  Report Type: 
  Country: None (occurrence: None)
  Receive Date: 20040126
  Receipt Date: 20031106
  Transmission Date: 20041129
  Serious: No
  Sender: FDA-Public Use
  Company Number: USA031051183

PATIENT
  Age: 12 Year
  Sex: Male
  Weight: 35 kg

DRUGS (3)
  1. STRATTERA [Suspect]
     Indication: ATTENTION DEFICIT/HYPERACTIVITY DISORDER
     Dosage: 43 MG/1 DAY
     Dates: start: 20030101
  2. NORTRIPTYLINE HCL [Concomitant]
  3. ADDERALL 10 [Concomitant]

REACTIONS (11)
  - ABDOMINAL PAIN UPPER [None]
  - EMOTIONAL DISTRESS [None]
  - EXCITABILITY [None]
  - FATIGUE [None]
  - GROWTH RETARDATION [None]
  - HEADACHE [None]
  - IRRITABILITY [None]
  - MOOD SWINGS [None]
  - PERSONALITY DISORDER [None]
  - PSYCHOMOTOR HYPERACTIVITY [None]
  - WEIGHT DECREASED [None]
